FAERS Safety Report 15434790 (Version 1)
Quarter: 2018Q3

REPORT INFORMATION
  Report Type: Spontaneous
  Country: US (occurrence: US)
  Receive Date: 20180921
  Receipt Date: 20180921
  Transmission Date: 20181010
  Serious: No
  Sender: FDA-Public Use
  Company Number: None

PATIENT
  Age: 64 Year
  Sex: Female

DRUGS (3)
  1. LETRAZOLE [Concomitant]
     Active Substance: LETROZOLE
  2. ZOMETA [Concomitant]
     Active Substance: ZOLEDRONIC ACID
  3. IBRANCE [Suspect]
     Active Substance: PALBOCICLIB
     Indication: BREAST CANCER
     Route: 048
     Dates: start: 20180511

REACTIONS (3)
  - Neuropathy peripheral [None]
  - Pleural effusion [None]
  - Alopecia [None]

NARRATIVE: CASE EVENT DATE: 20180920
